FAERS Safety Report 9452902 (Version 3)
Quarter: 2013Q3

REPORT INFORMATION
  Report Type: Spontaneous
  Country: US (occurrence: US)
  Receive Date: 20130812
  Receipt Date: 20130918
  Transmission Date: 20140515
  Serious: Yes (Death)
  Sender: FDA-Public Use
  Company Number: US-PFIZER INC-2013229958

PATIENT
  Age: 70 Year
  Sex: Male

DRUGS (1)
  1. REVATIO [Suspect]
     Indication: PULMONARY HYPERTENSION
     Dosage: 40 MG, 3X/DAY (TWO 20MG TABLETS 3X/DAY)

REACTIONS (2)
  - Death [Fatal]
  - Off label use [Unknown]
